FAERS Safety Report 8061155 (Version 3)
Quarter: 2014Q2

REPORT INFORMATION
  Report Type: Spontaneous
  Country: US (occurrence: US)
  Receive Date: 20110729
  Receipt Date: 20140523
  Transmission Date: 20141212
  Serious: Yes (Hospitalization)
  Sender: FDA-Public Use
  Company Number: US-GLAXOSMITHKLINE-A0923622A

PATIENT
  Age: 68 Year
  Sex: Male

DRUGS (1)
  1. AVANDIA [Suspect]
     Indication: DIABETES MELLITUS
     Dosage: 4MG TWICE PER DAY
     Route: 048
     Dates: start: 20041021, end: 2010

REACTIONS (6)
  - Cerebrovascular accident [Not Recovered/Not Resolved]
  - Cardiac failure [Unknown]
  - Aphasia [Unknown]
  - Gastrointestinal tube insertion [Unknown]
  - Dizziness [Unknown]
  - Pleural effusion [Unknown]
